FAERS Safety Report 20615889 (Version 1)
Quarter: 2022Q1

REPORT INFORMATION
  Report Type: Spontaneous
  Country: CA (occurrence: CA)
  Receive Date: 20220321
  Receipt Date: 20220321
  Transmission Date: 20220423
  Serious: Yes (Other)
  Sender: FDA-Public Use
  Company Number: CA-SA-2022SA093157

PATIENT
  Age: 57 Year
  Sex: Female

DRUGS (2)
  1. RANITIDINE HYDROCHLORIDE [Suspect]
     Active Substance: RANITIDINE HYDROCHLORIDE
     Dosage: UNK
  2. MEPOLIZUMAB [Suspect]
     Active Substance: MEPOLIZUMAB
     Indication: Asthma
     Dosage: 100 MG
     Route: 065
     Dates: start: 20170721

REACTIONS (25)
  - Peak expiratory flow rate abnormal [Recovering/Resolving]
  - Cough [Recovering/Resolving]
  - Vision blurred [Recovering/Resolving]
  - Disorientation [Recovering/Resolving]
  - Gait disturbance [Recovered/Resolved]
  - Multiple sclerosis [Unknown]
  - Sjogren^s syndrome [Unknown]
  - Cerebral small vessel ischaemic disease [Unknown]
  - Fall [Unknown]
  - Weight increased [Unknown]
  - Gait inability [Recovered/Resolved]
  - Neuropathy peripheral [Recovering/Resolving]
  - Nausea [Recovering/Resolving]
  - Nervous system disorder [Unknown]
  - Chest discomfort [Recovering/Resolving]
  - Increased viscosity of bronchial secretion [Recovering/Resolving]
  - Speech disorder [Recovering/Resolving]
  - Photophobia [Recovering/Resolving]
  - Paraesthesia [Recovered/Resolved]
  - Feeling abnormal [Unknown]
  - Dizziness [Recovering/Resolving]
  - Poor quality sleep [Recovered/Resolved]
  - Vertigo [Recovering/Resolving]
  - Dyspnoea [Unknown]
  - Muscular weakness [Unknown]

NARRATIVE: CASE EVENT DATE: 20170220
